FAERS Safety Report 4433559-9 (Version None)
Quarter: 2004Q3

REPORT INFORMATION
  Report Type: 
  Country: None (occurrence: None)
  Receive Date: 20040824
  Receipt Date: 20040810
  Transmission Date: 20050211
  Serious: Yes (Hospitalization)
  Sender: FDA-Public Use
  Company Number: 2004-00458FE

PATIENT
  Age: 29 Year
  Sex: Female

DRUGS (5)
  1. PENTASA [Suspect]
     Dosage: ORALLY
     Route: 048
     Dates: start: 20030215, end: 20040701
  2. DEBRIDAT (DEBRYDAT ^JOUVEINAL^) (TRIMEBUTINE MALEATE) [Suspect]
     Dosage: 600 MG, ORALLY
     Route: 048
  3. DI-ANTALVIC (DI-ANTALVIC) [Suspect]
     Dosage: 2 TABLET(S), ORALLY
     Route: 048
  4. ANDROCUR (ANDROCUR) (CYPROTERONE ACETATE) [Suspect]
     Dosage: ORALLY
     Route: 048
     Dates: end: 20040615
  5. OROMONE (OROMONE) (ESTRADIOL) [Suspect]
     Dosage: 2 MG, ORALLY
     Route: 048
     Dates: end: 20040615

REACTIONS (5)
  - ARTHRITIS [None]
  - HEPATOCELLULAR DAMAGE [None]
  - HYPERGAMMAGLOBULINAEMIA [None]
  - SYNOVITIS [None]
  - SYSTEMIC LUPUS ERYTHEMATOSUS [None]
